FAERS Safety Report 25796779 (Version 1)
Quarter: 2025Q3

REPORT INFORMATION
  Report Type: Spontaneous
  Country: US (occurrence: US)
  Receive Date: 20250912
  Receipt Date: 20250912
  Transmission Date: 20251021
  Serious: No
  Sender: ANI
  Company Number: US-ANIPHARMA-2025-US-018946

PATIENT
  Age: 77 Year
  Sex: Female

DRUGS (1)
  1. CORTICOTROPIN [Suspect]
     Active Substance: CORTICOTROPIN
     Indication: Rheumatoid arthritis
     Route: 058

REACTIONS (5)
  - Insomnia [Unknown]
  - Diarrhoea [Unknown]
  - Constipation [Unknown]
  - Breakthrough pain [Unknown]
  - Contraindicated product administered [Not Recovered/Not Resolved]
